FAERS Safety Report 4644774-3 (Version None)
Quarter: 2005Q2

REPORT INFORMATION
  Report Type: 
  Country: None (occurrence: None)
  Receive Date: 20050422
  Receipt Date: 20050412
  Transmission Date: 20051028
  Serious: Yes (Hospitalization)
  Sender: FDA-Public Use
  Company Number: HQWYE015414APR05

PATIENT
  Age: 47 Year
  Sex: Male

DRUGS (12)
  1. RAPAMUNE [Suspect]
     Indication: IMMUNOSUPPRESSION
     Dosage: SEE IMAGE
     Route: 048
     Dates: start: 20050307, end: 20050307
  2. RAPAMUNE [Suspect]
     Indication: PROPHYLAXIS AGAINST TRANSPLANT REJECTION
     Dosage: SEE IMAGE
     Route: 048
     Dates: start: 20050307, end: 20050307
  3. RAPAMUNE [Suspect]
     Indication: IMMUNOSUPPRESSION
     Dosage: SEE IMAGE
     Route: 048
     Dates: start: 20050308, end: 20050322
  4. RAPAMUNE [Suspect]
     Indication: PROPHYLAXIS AGAINST TRANSPLANT REJECTION
     Dosage: SEE IMAGE
     Route: 048
     Dates: start: 20050308, end: 20050322
  5. RAPAMUNE [Suspect]
     Indication: IMMUNOSUPPRESSION
     Dosage: SEE IMAGE
     Route: 048
     Dates: start: 20050323
  6. RAPAMUNE [Suspect]
     Indication: PROPHYLAXIS AGAINST TRANSPLANT REJECTION
     Dosage: SEE IMAGE
     Route: 048
     Dates: start: 20050323
  7. CYCLOSPORINE [Concomitant]
  8. PREDNISONE [Concomitant]
  9. NIFEDIPINE [Concomitant]
  10. SULFAMETHOXAZOLE + TRIMETHOPRIM [Concomitant]
  11. OMEPRAZOLE [Concomitant]
  12. ACETYLSALICYLIC ACID SRT [Concomitant]

REACTIONS (6)
  - COMPLICATIONS OF TRANSPLANTED KIDNEY [None]
  - HAEMATOCRIT DECREASED [None]
  - HAEMOGLOBIN DECREASED [None]
  - PLATELET COUNT DECREASED [None]
  - RENAL IMPAIRMENT [None]
  - WHITE BLOOD CELL COUNT DECREASED [None]
